FAERS Safety Report 4654224-9 (Version None)
Quarter: 2005Q2

REPORT INFORMATION
  Report Type: 
  Country: None (occurrence: None)
  Receive Date: 20050404
  Receipt Date: 20041214
  Transmission Date: 20051028
  Serious: No
  Sender: FDA-Public Use
  Company Number: USA041286155

PATIENT
  Age: 51 Year
  Sex: Female

DRUGS (2)
  1. CYMBALTA [Suspect]
     Indication: FIBROMYALGIA
     Dosage: 30 MG
     Dates: start: 20041101
  2. XANAX (ALPRAZOLAM DUM) [Concomitant]

REACTIONS (2)
  - FEELING ABNORMAL [None]
  - VOMITING [None]
